FAERS Safety Report 4550084-5 (Version None)
Quarter: 2005Q1

REPORT INFORMATION
  Report Type: 
  Country: None (occurrence: None)
  Receive Date: 20050111
  Receipt Date: 20050111
  Transmission Date: 20050727
  Serious: Yes (Other)
  Sender: FDA-Public Use
  Company Number: None

PATIENT
  Age: 76 Year
  Sex: Female
  Weight: 78.4 kg

DRUGS (1)
  1. OXALIPLATIN 130 MG/M2 [Suspect]
     Indication: COLON CANCER METASTATIC
     Dosage: Q21 DAYS, IV
     Route: 042
     Dates: start: 19950110

REACTIONS (4)
  - HYPOAESTHESIA [None]
  - INFUSION RELATED REACTION [None]
  - MUSCLE SPASMS [None]
  - PARAESTHESIA [None]
